FAERS Safety Report 24021196 (Version 1)
Quarter: 2024Q2

REPORT INFORMATION
  Report Type: Spontaneous
  Country: US (occurrence: US)
  Receive Date: 20240627
  Receipt Date: 20240627
  Transmission Date: 20240716
  Serious: Yes (Other)
  Sender: FDA-Public Use
  Company Number: US-AMGEN-USASP2024123917

PATIENT
  Age: 8 Year
  Sex: Female

DRUGS (4)
  1. PREDNISONE [Suspect]
     Active Substance: PREDNISONE
     Indication: Asthma
     Dosage: UNK
     Route: 065
  2. FLUTICASONE [Concomitant]
     Active Substance: FLUTICASONE
     Indication: Asthma
     Dosage: FOR 12 MONTHS
  3. PROPIONATE [Concomitant]
     Indication: Asthma
  4. SALMETEROL [Concomitant]
     Active Substance: SALMETEROL
     Indication: Asthma

REACTIONS (1)
  - Pericardial effusion [Recovered/Resolved]
